FAERS Safety Report 16051817 (Version 1)
Quarter: 2019Q1

REPORT INFORMATION
  Report Type: Spontaneous
  Country: US (occurrence: US)
  Receive Date: 20190308
  Receipt Date: 20190308
  Transmission Date: 20190418
  Serious: No
  Sender: FDA-Public Use
  Company Number: US-BAYER-2019-045922

PATIENT
  Age: 65 Year
  Sex: Female
  Weight: 84 kg

DRUGS (2)
  1. MIRALAX [Suspect]
     Active Substance: POLYETHYLENE GLYCOL 3350
     Indication: BOWEL MOVEMENT IRREGULARITY
     Dosage: 1 DF, QD
     Route: 048
     Dates: start: 201902, end: 201903
  2. MIRALAX [Suspect]
     Active Substance: POLYETHYLENE GLYCOL 3350
     Indication: BOWEL MOVEMENT IRREGULARITY
     Dosage: UNK

REACTIONS (6)
  - Product solubility abnormal [Unknown]
  - Product taste abnormal [Unknown]
  - Product use issue [None]
  - Product use in unapproved indication [Unknown]
  - Drug ineffective [Unknown]
  - Poor quality product administered [None]

NARRATIVE: CASE EVENT DATE: 201902
